FAERS Safety Report 6829504-9 (Version None)
Quarter: 2010Q3

REPORT INFORMATION
  Report Type: 
  Country: None (occurrence: None)
  Receive Date: 20100709
  Receipt Date: 20070324
  Transmission Date: 20110219
  Serious: No
  Sender: FDA-Public Use
  Company Number: US-PFIZER INC-2007005450

PATIENT
  Sex: Female
  Weight: 81.65 kg

DRUGS (9)
  1. CHANTIX [Suspect]
     Indication: SMOKING CESSATION THERAPY
     Route: 048
     Dates: start: 20061101, end: 20061201
  2. CHANTIX [Suspect]
     Indication: TOBACCO ABUSE
  3. GUAIFEN-PSE [Concomitant]
  4. IBUPROFEN [Concomitant]
  5. MAXIDEX [Concomitant]
  6. LISINOPRIL [Concomitant]
  7. CYCLOBENZAPRINE [Concomitant]
  8. FEXOFENADINE [Concomitant]
  9. OXYCODONE HCL [Concomitant]

REACTIONS (4)
  - DRUG INEFFECTIVE [None]
  - MALAISE [None]
  - NAUSEA [None]
  - RETCHING [None]
